FAERS Safety Report 21922812 (Version 1)
Quarter: 2023Q1

REPORT INFORMATION
  Report Type: Spontaneous
  Country: US (occurrence: US)
  Receive Date: 20230128
  Receipt Date: 20230128
  Transmission Date: 20230417
  Serious: No
  Sender: FDA-Public Use
  Company Number: US-drreddys-SPO/USA/22/0158679

PATIENT
  Age: 46 Year
  Sex: Male

DRUGS (1)
  1. LENALIDOMIDE [Suspect]
     Active Substance: LENALIDOMIDE
     Indication: Plasma cell myeloma
     Dosage: EVERY DAY FOR 21 DAYS AND THEN 7 DAYS OFF
     Route: 048
     Dates: start: 20221028, end: 20221030

REACTIONS (2)
  - Urticaria [Recovered/Resolved]
  - Peripheral swelling [Recovered/Resolved]
